FAERS Safety Report 7511703-4 (Version None)
Quarter: 2011Q2

REPORT INFORMATION
  Report Type: 
  Country: None (occurrence: None)
  Receive Date: 20110531
  Receipt Date: 20110525
  Transmission Date: 20111010
  Serious: Yes (Death)
  Sender: FDA-Public Use
  Company Number: US-ASTELLAS-2011US002453

PATIENT
  Age: 84 Year
  Sex: Male
  Weight: 84 kg

DRUGS (6)
  1. AZD6244 HYDROGEN SULFATE [Suspect]
     Indication: NON-SMALL CELL LUNG CANCER
     Dosage: 150 MG, UID/QD
     Route: 048
     Dates: start: 20110111, end: 20110321
  2. AZD6244 HYDROGEN SULFATE [Suspect]
     Dosage: 150 MG, UID/QD
     Route: 048
     Dates: start: 20110405, end: 20110415
  3. OXYCODONE HCL [Concomitant]
     Indication: PAIN
     Dosage: UNK
     Route: 065
  4. ERLOTINIB HYDROCHLORIDE [Suspect]
     Indication: NON-SMALL CELL LUNG CANCER
     Dosage: 100 MG, QHS
     Route: 048
     Dates: start: 20110111, end: 20110321
  5. FENTANYL [Concomitant]
     Indication: PAIN
     Dosage: UNK
     Route: 065
     Dates: start: 20110329
  6. ERLOTINIB HYDROCHLORIDE [Suspect]
     Dosage: 100 MG, QHS
     Route: 048
     Dates: start: 20110405, end: 20110415

REACTIONS (1)
  - DEATH [None]
